FAERS Safety Report 16726579 (Version 2)
Quarter: 2019Q3

REPORT INFORMATION
  Report Type: Report from Study
  Country: CA (occurrence: CA)
  Receive Date: 20190821
  Receipt Date: 20190830
  Transmission Date: 20191005
  Serious: Yes (Other)
  Sender: FDA-Public Use
  Company Number: CA-NALPROPION PHARMACEUTICALS INC.-2019-007731

PATIENT

DRUGS (8)
  1. CONTRAVE [Suspect]
     Active Substance: BUPROPION HYDROCHLORIDE\NALTREXONE HYDROCHLORIDE
     Dosage: APPROXIMATELY 21/JUL/2019, TWO TABLETS IN MORNING (2 DOSAGE FORMS, 1 IN 1 D)
     Route: 048
     Dates: start: 201907, end: 201908
  2. TRINTELLIX [Concomitant]
     Active Substance: VORTIOXETINE HYDROBROMIDE
     Indication: DEPRESSION
     Dosage: DAILY
     Route: 048
  3. BIPHENTIN [Concomitant]
     Active Substance: METHYLPHENIDATE
     Indication: ATTENTION DEFICIT/HYPERACTIVITY DISORDER
     Dosage: DAILY
     Route: 048
  4. CONTRAVE [Suspect]
     Active Substance: BUPROPION HYDROCHLORIDE\NALTREXONE HYDROCHLORIDE
     Indication: WEIGHT CONTROL
     Dosage: 1 TABLET IN MORNING (1 DOSAGE FORM
     Route: 048
     Dates: start: 20190615, end: 20190621
  5. CONTRAVE [Suspect]
     Active Substance: BUPROPION HYDROCHLORIDE\NALTREXONE HYDROCHLORIDE
     Dosage: TWO TABLETS IN MORNING, TWO TABLETS IN EVENING, APPROXIMATELY 20/JUL/2019
     Route: 048
     Dates: start: 20190706, end: 201907
  6. CONTRAVE [Suspect]
     Active Substance: BUPROPION HYDROCHLORIDE\NALTREXONE HYDROCHLORIDE
     Dosage: APPROXIMATELY 09/AUG/2019, ONE TABLETS ONCE DAILY, APPROXIMATELY 12/AUG/2019
     Route: 048
     Dates: start: 201908, end: 201908
  7. CONTRAVE [Suspect]
     Active Substance: BUPROPION HYDROCHLORIDE\NALTREXONE HYDROCHLORIDE
     Dosage: TWO TABLETS IN MORNING, ONE TABLET IN EVENING (2 IN 1 D)
     Route: 048
     Dates: start: 20190629, end: 20190705
  8. CONTRAVE [Suspect]
     Active Substance: BUPROPION HYDROCHLORIDE\NALTREXONE HYDROCHLORIDE
     Dosage: ONE TABLET IN MORNING, ONE TABLET IN EVENING (1 DOSAGE FORMS,2 IN 1 D)
     Route: 048
     Dates: start: 20190622, end: 20190628

REACTIONS (6)
  - Loss of personal independence in daily activities [Unknown]
  - Dry mouth [Unknown]
  - Weight increased [Unknown]
  - Fatigue [Recovering/Resolving]
  - Drug titration error [Unknown]
  - Asthenia [Unknown]

NARRATIVE: CASE EVENT DATE: 2019
